FAERS Safety Report 23568705 (Version 2)
Quarter: 2024Q1

REPORT INFORMATION
  Report Type: Spontaneous
  Country: CH (occurrence: CH)
  Receive Date: 20240227
  Receipt Date: 20240322
  Transmission Date: 20240409
  Serious: Yes (Other)
  Sender: FDA-Public Use
  Company Number: CH-TEVA-VS-3159245

PATIENT
  Age: 46 Year
  Sex: Male

DRUGS (1)
  1. DULOXETINE [Suspect]
     Active Substance: DULOXETINE
     Indication: Product used for unknown indication
     Dosage: DELAYED RELEASE
     Route: 048

REACTIONS (6)
  - Gastrooesophageal reflux disease [Unknown]
  - Abdominal pain [Unknown]
  - Vomiting [Unknown]
  - Product taste abnormal [Unknown]
  - Product odour abnormal [Unknown]
  - Gastrointestinal disorder [Unknown]
